FAERS Safety Report 5736187-8 (Version None)
Quarter: 2008Q2

REPORT INFORMATION
  Report Type: 
  Country: None (occurrence: None)
  Receive Date: 20080508
  Receipt Date: 20080430
  Transmission Date: 20081010
  Serious: Yes (Hospitalization)
  Sender: FDA-Public Use
  Company Number: 2008-02738

PATIENT
  Age: 40 Year
  Sex: Female

DRUGS (2)
  1. TRELSTAR DEPOT [Suspect]
     Indication: OVARIAN DISORDER
     Dosage: 3.75 MG, INTRAMUSCULAR
     Route: 030
     Dates: start: 20060629, end: 20060921
  2. CHEMOTHERAPY [Concomitant]

REACTIONS (3)
  - INJECTION SITE CELLULITIS [None]
  - NEUTROPENIA [None]
  - WHITE BLOOD CELL COUNT DECREASED [None]
